FAERS Safety Report 11892237 (Version 7)
Quarter: 2017Q4

REPORT INFORMATION
  Report Type: Report from Study
  Country: US (occurrence: US)
  Receive Date: 20160106
  Receipt Date: 20171212
  Transmission Date: 20180320
  Serious: Yes (Hospitalization, Other)
  Sender: FDA-Public Use
  Company Number: US-JNJFOC-20151203138

PATIENT
  Age: 69 Year
  Sex: Male

DRUGS (32)
  1. IMBRUVICA [Suspect]
     Active Substance: IBRUTINIB
     Indication: CHRONIC LYMPHOCYTIC LEUKAEMIA
     Route: 048
     Dates: start: 20150711
  2. IMBRUVICA [Suspect]
     Active Substance: IBRUTINIB
     Indication: CHRONIC LYMPHOCYTIC LEUKAEMIA
     Route: 048
     Dates: start: 20150720, end: 20151129
  3. COENZYME Q10 [Concomitant]
     Active Substance: UBIDECARENONE
  4. ZOFRAN [Concomitant]
     Active Substance: ONDANSETRON HYDROCHLORIDE
     Dosage: 4 MG, PRN
  5. MAGNESIUM [Concomitant]
     Active Substance: MAGNESIUM
  6. IMBRUVICA [Suspect]
     Active Substance: IBRUTINIB
     Indication: MANTLE CELL LYMPHOMA
     Route: 048
     Dates: start: 2015, end: 2015
  7. VITAMIN D3 [Concomitant]
     Active Substance: CHOLECALCIFEROL
  8. ZYRTEC [Concomitant]
     Active Substance: CETIRIZINE HYDROCHLORIDE
  9. DRONABINOL. [Concomitant]
     Active Substance: DRONABINOL
  10. CARDIZEM [Interacting]
     Active Substance: DILTIAZEM HYDROCHLORIDE
     Indication: PRODUCT USED FOR UNKNOWN INDICATION
     Route: 065
     Dates: end: 2015
  11. VITAMIN B COMPLEX [Concomitant]
     Active Substance: CYANOCOBALAMIN\DEXPANTHENOL\NIACINAMIDE\PYRIDOXINE HYDROCHLORIDE\RIBOFLAVIN 5^-PHOSPHATE SODIUM\THIAMINE HYDROCHLORIDE\VITAMIN B COMPLEX
  12. IMBRUVICA [Suspect]
     Active Substance: IBRUTINIB
     Indication: MANTLE CELL LYMPHOMA
     Route: 048
     Dates: start: 20150711
  13. CARDIZEM [Interacting]
     Active Substance: DILTIAZEM HYDROCHLORIDE
     Indication: PRODUCT USED FOR UNKNOWN INDICATION
     Route: 065
     Dates: start: 20151130
  14. PLAVIX [Concomitant]
     Active Substance: CLOPIDOGREL BISULFATE
  15. VITAMIN D [Concomitant]
     Active Substance: CHOLECALCIFEROL
  16. IMBRUVICA [Suspect]
     Active Substance: IBRUTINIB
     Indication: CHRONIC LYMPHOCYTIC LEUKAEMIA
     Route: 048
     Dates: start: 2015, end: 2015
  17. IMBRUVICA [Suspect]
     Active Substance: IBRUTINIB
     Indication: CHRONIC LYMPHOCYTIC LEUKAEMIA
     Route: 048
     Dates: start: 20150717
  18. SILYBUM MARIANUM [Concomitant]
     Active Substance: DIETARY SUPPLEMENT\HERBALS\MILK THISTLE
  19. BUSPAR [Concomitant]
     Active Substance: BUSPIRONE HYDROCHLORIDE
  20. ASPIRIN. [Concomitant]
     Active Substance: ASPIRIN
  21. IMBRUVICA [Suspect]
     Active Substance: IBRUTINIB
     Indication: MANTLE CELL LYMPHOMA
     Route: 048
     Dates: start: 20150720, end: 20151129
  22. VALIUM [Concomitant]
     Active Substance: DIAZEPAM
     Dosage: 5 MG, PRN
  23. NORVASC [Concomitant]
     Active Substance: AMLODIPINE BESYLATE
     Indication: HYPERTENSION
     Dates: end: 20151129
  24. BENADRYL [Concomitant]
     Active Substance: DIPHENHYDRAMINE HYDROCHLORIDE
  25. COREG [Concomitant]
     Active Substance: CARVEDILOL
  26. COZAAR [Concomitant]
     Active Substance: LOSARTAN POTASSIUM
     Dosage: UNK
     Dates: end: 20151129
  27. TYLENOL [Concomitant]
     Active Substance: ACETAMINOPHEN
  28. AMBIEN [Concomitant]
     Active Substance: ZOLPIDEM TARTRATE
     Dosage: 5 MG, PRN
  29. IMBRUVICA [Suspect]
     Active Substance: IBRUTINIB
     Indication: MANTLE CELL LYMPHOMA
     Route: 048
     Dates: start: 20150717
  30. LIPITOR [Concomitant]
     Active Substance: ATORVASTATIN CALCIUM
  31. NIACIN. [Concomitant]
     Active Substance: NIACIN
  32. ROXICODONE [Concomitant]
     Active Substance: OXYCODONE HYDROCHLORIDE
     Dosage: 5 MG, PRN

REACTIONS (12)
  - Laboratory test abnormal [Unknown]
  - Drug interaction [Unknown]
  - Aortic aneurysm [Unknown]
  - Chest pain [Recovered/Resolved]
  - Atrial fibrillation [Unknown]
  - Cardiac disorder [Unknown]
  - Blood test abnormal [Unknown]
  - Dyspnoea [Recovered/Resolved]
  - Fatigue [Unknown]
  - Platelet count decreased [Unknown]
  - Drug ineffective [Unknown]
  - White blood cell count abnormal [Unknown]

NARRATIVE: CASE EVENT DATE: 2015
